FAERS Safety Report 9922388 (Version 1)
Quarter: 2014Q1

REPORT INFORMATION
  Report Type: Spontaneous
  Country: US (occurrence: None)
  Receive Date: 20140224
  Receipt Date: 20140224
  Transmission Date: 20141002
  Serious: Yes (Disabling, Other)
  Sender: FDA-Public Use
  Company Number: None

PATIENT
  Age: 23 Year
  Sex: Female
  Weight: 68.04 kg

DRUGS (1)
  1. DEPO PROVERA [Suspect]
     Indication: CONTRACEPTION

REACTIONS (5)
  - Night sweats [None]
  - Hot flush [None]
  - Mood swings [None]
  - Suicidal ideation [None]
  - Premature menopause [None]
